FAERS Safety Report 4639506-9 (Version None)
Quarter: 2005Q2

REPORT INFORMATION
  Report Type: 
  Country: None (occurrence: None)
  Receive Date: 20050418
  Receipt Date: 20050411
  Transmission Date: 20051028
  Serious: Yes (Other)
  Sender: FDA-Public Use
  Company Number: DEWYE575612APR05

PATIENT
  Age: 45 Year
  Sex: Male

DRUGS (9)
  1. RAPAMUNE [Suspect]
     Dates: start: 20020601
  2. CLONIDINE [Concomitant]
  3. BAYOTENSIN (NITRENDIPINE) [Concomitant]
  4. BISOPROLOL FUMARATE [Concomitant]
  5. RAMIPRIL [Concomitant]
  6. FOSAMAX [Concomitant]
  7. BONDIOL (ALFACALCIDOL) [Concomitant]
  8. ATORVASTATIN CALCIUM [Concomitant]
  9. PRAVASTATIN [Concomitant]

REACTIONS (1)
  - MACULAR DEGENERATION [None]
